FAERS Safety Report 16176082 (Version 1)
Quarter: 2019Q2

REPORT INFORMATION
  Report Type: Spontaneous
  Country: US (occurrence: US)
  Receive Date: 20190409
  Receipt Date: 20190409
  Transmission Date: 20190711
  Serious: Yes (Other)
  Sender: FDA-Public Use
  Company Number: US-ASTRAZENECA-2019SE51621

PATIENT
  Age: 834 Month
  Sex: Female
  Weight: 55.8 kg

DRUGS (4)
  1. DICYCLOMINE [Concomitant]
     Active Substance: DICYCLOMINE HYDROCHLORIDE
  2. NITROSTAT [Suspect]
     Active Substance: NITROGLYCERIN
     Indication: CARDIOMYOPATHY
     Route: 048
  3. NITROSTAT [Suspect]
     Active Substance: NITROGLYCERIN
     Indication: ANGINA UNSTABLE
     Route: 048
  4. CRESTOR [Suspect]
     Active Substance: ROSUVASTATIN CALCIUM
     Route: 048

REACTIONS (7)
  - Gait disturbance [Unknown]
  - Cardiomyopathy [Unknown]
  - Angina unstable [Unknown]
  - Drug hypersensitivity [Unknown]
  - Expired product administered [Unknown]
  - Malaise [Unknown]
  - Complication associated with device [Unknown]

NARRATIVE: CASE EVENT DATE: 201902
